FAERS Safety Report 21776229 (Version 1)
Quarter: 2022Q4

REPORT INFORMATION
  Report Type: Spontaneous
  Country: US (occurrence: US)
  Receive Date: 20221226
  Receipt Date: 20221226
  Transmission Date: 20230113
  Serious: No
  Sender: FDA-Public Use
  Company Number: US-MIGRATION_PFIZER-2022BHV002535

PATIENT
  Age: 54 Year
  Sex: Female

DRUGS (1)
  1. NURTEC ODT [Suspect]
     Active Substance: RIMEGEPANT SULFATE
     Indication: Headache
     Dosage: NURTEC ODT 75MG, TAKE 1 TABLET BY MOUTH AT THE ONSET OF A HEADACHE: NO MORE THAN 1 IN A 24 HR PERIOD
     Route: 048
     Dates: start: 20220822

REACTIONS (5)
  - Diarrhoea [Not Recovered/Not Resolved]
  - COVID-19 [Unknown]
  - Nasal congestion [Unknown]
  - Anosmia [Unknown]
  - Abdominal pain upper [Not Recovered/Not Resolved]

NARRATIVE: CASE EVENT DATE: 20220801
